FAERS Safety Report 4892782-X (Version None)
Quarter: 2006Q1

REPORT INFORMATION
  Report Type: 
  Country: None (occurrence: None)
  Receive Date: 20060126
  Receipt Date: 20051005
  Transmission Date: 20060701
  Serious: Yes (Hospitalization)
  Sender: FDA-Public Use
  Company Number: 200517081US

PATIENT
  Sex: Female

DRUGS (4)
  1. LANTUS [Suspect]
     Indication: DIABETES MELLITUS NON-INSULIN-DEPENDENT
     Dosage: DOSE: NOT PROVIDED
     Dates: start: 20020111, end: 20020518
  2. REGULAR INSULIN [Concomitant]
     Indication: DIABETES MELLITUS NON-INSULIN-DEPENDENT
     Dosage: DOSE: NOT PROVIDED
  3. AVANDIA [Concomitant]
     Indication: DIABETES MELLITUS
     Dates: start: 20020520
  4. TRIMETHOPRIM + SULFAMETHOXAZOLE [Concomitant]
     Dosage: DOSE: UNK
     Dates: start: 20020520, end: 20020523

REACTIONS (4)
  - BLOOD GLUCOSE INCREASED [None]
  - CARDIAC FAILURE CONGESTIVE [None]
  - DYSPNOEA [None]
  - HEART RATE INCREASED [None]
